FAERS Safety Report 7546642-6 (Version None)
Quarter: 2011Q2

REPORT INFORMATION
  Report Type: 
  Country: None (occurrence: None)
  Receive Date: 20110524
  Receipt Date: 20110302
  Transmission Date: 20111010
  Serious: No
  Sender: FDA-Public Use
  Company Number: 028488

PATIENT
  Sex: Female
  Weight: 113.4 kg

DRUGS (2)
  1. PREVACID [Concomitant]
  2. CIMZIA [Suspect]
     Indication: CROHN'S DISEASE
     Dosage: (400 MG 1X/4 WEEKS SUBCUTANEOUS)
     Route: 058

REACTIONS (1)
  - ARTHRALGIA [None]
